FAERS Safety Report 10676147 (Version 2)
Quarter: 2014Q4

REPORT INFORMATION
  Report Type: Report from Study
  Country: FR (occurrence: FR)
  Receive Date: 20141226
  Receipt Date: 20141226
  Transmission Date: 20150529
  Serious: Yes (Hospitalization, Other)
  Sender: FDA-Public Use
  Company Number: FR-ROCHE-1161423

PATIENT
  Age: 79 Year
  Sex: Female

DRUGS (2)
  1. RITUXIMAB [Suspect]
     Active Substance: RITUXIMAB
     Indication: RHEUMATOID ARTHRITIS
     Route: 041
  2. PARACETAMOL [Concomitant]
     Active Substance: ACETAMINOPHEN

REACTIONS (11)
  - Mitral valve incompetence [Recovered/Resolved]
  - Iron deficiency [Recovered/Resolved]
  - Infusion related reaction [Recovered/Resolved]
  - Cardiac failure [Recovered/Resolved]
  - Infusion related reaction [Recovered/Resolved]
  - Malnutrition [Recovered/Resolved]
  - Cardiac failure [Recovered/Resolved]
  - Orthostatic hypotension [Recovered/Resolved]
  - Pneumonia [Recovered/Resolved]
  - Acute pulmonary oedema [Recovered/Resolved]
  - Oral fungal infection [Recovered/Resolved]

NARRATIVE: CASE EVENT DATE: 20061025
